FAERS Safety Report 25159410 (Version 1)
Quarter: 2025Q2

REPORT INFORMATION
  Report Type: Report from Study
  Country: CL (occurrence: CL)
  Receive Date: 20250404
  Receipt Date: 20250404
  Transmission Date: 20250716
  Serious: Yes (Other)
  Sender: ROCHE
  Company Number: CL-ROCHE-10000244323

PATIENT
  Age: 66 Year
  Sex: Female

DRUGS (1)
  1. HERCEPTIN [Suspect]
     Active Substance: TRASTUZUMAB
     Indication: HER2 positive breast cancer
     Dosage: TREATMENT TO COMPLETE 18 CYCLES. ?LAST CYCLE NUMBER 15 ON 16-JAN-2025.
     Route: 058
     Dates: start: 20240213, end: 20250116

REACTIONS (3)
  - Echocardiogram abnormal [Not Recovered/Not Resolved]
  - Dyspnoea [Recovered/Resolved]
  - Hypertensive crisis [Recovered/Resolved]

NARRATIVE: CASE EVENT DATE: 20250127
